FAERS Safety Report 13159478 (Version 2)
Quarter: 2017Q2

REPORT INFORMATION
  Report Type: Spontaneous
  Country: FR (occurrence: FR)
  Receive Date: 20170127
  Receipt Date: 20170526
  Transmission Date: 20170830
  Serious: Yes (Other)
  Sender: FDA-Public Use
  Company Number: FR-ACORDA-ACO_133026_2017

PATIENT
  Age: 59 Year
  Sex: Female

DRUGS (6)
  1. QUTENZA [Suspect]
     Active Substance: CAPSAICIN
     Dosage: UNK UNK, EVERY 3 MONTHS
     Route: 061
  2. QUTENZA [Suspect]
     Active Substance: CAPSAICIN
     Dosage: UNK UNK, EVERY 3 MONTHS
     Route: 061
  3. QUTENZA [Suspect]
     Active Substance: CAPSAICIN
     Dosage: UNK UNK, EVERY 3 MONTHS (1 HOUR)
     Route: 061
     Dates: start: 20161209, end: 20161209
  4. QUTENZA [Suspect]
     Active Substance: CAPSAICIN
     Dosage: UNK UNK, EVERY 3 MONTHS
     Route: 061
  5. TRAMADOL. [Concomitant]
     Active Substance: TRAMADOL
     Indication: PRODUCT USED FOR UNKNOWN INDICATION
     Dosage: UNK
     Route: 065
  6. QUTENZA [Suspect]
     Active Substance: CAPSAICIN
     Indication: NEURALGIA
     Dosage: UNK UNK, EVERY 3 MONTHS
     Route: 061
     Dates: start: 20140502, end: 20140502

REACTIONS (4)
  - Drug effect decreased [Unknown]
  - Burns second degree [Recovered/Resolved]
  - Application site erythema [Recovered/Resolved]
  - Application site pain [Recovered/Resolved]

NARRATIVE: CASE EVENT DATE: 20161209
